FAERS Safety Report 22366656 (Version 1)
Quarter: 2023Q2

REPORT INFORMATION
  Report Type: Spontaneous
  Country: US (occurrence: None)
  Receive Date: 20230524
  Receipt Date: 20230524
  Transmission Date: 20230721
  Serious: No
  Sender: FDA-Public Use
  Company Number: None

PATIENT
  Age: 24 Year
  Sex: Female
  Weight: 75.15 kg

DRUGS (5)
  1. TRUDHESA [Suspect]
     Active Substance: DIHYDROERGOTAMINE MESYLATE
     Dates: start: 20230523, end: 20230523
  2. PHENTERMINE [Concomitant]
     Active Substance: PHENTERMINE
  3. ZOFRAN [Concomitant]
     Active Substance: ONDANSETRON HYDROCHLORIDE
  4. TRAZODONE [Concomitant]
     Active Substance: TRAZODONE HYDROCHLORIDE
  5. QULIPTA [Concomitant]
     Active Substance: ATOGEPANT

REACTIONS (11)
  - Chest pain [None]
  - Pain in jaw [None]
  - Muscle spasms [None]
  - Nausea [None]
  - Fatigue [None]
  - Dizziness [None]
  - Dyspnoea [None]
  - Rash [None]
  - Swelling face [None]
  - Nasal congestion [None]
  - Hypoaesthesia [None]

NARRATIVE: CASE EVENT DATE: 20230523
